FAERS Safety Report 5285664-5 (Version None)
Quarter: 2007Q1

REPORT INFORMATION
  Report Type: 
  Country: None (occurrence: None)
  Receive Date: 20070126
  Receipt Date: 20061113
  Transmission Date: 20070707
  Serious: No
  Sender: FDA-Public Use
  Company Number: 012674

PATIENT
  Sex: Female

DRUGS (4)
  1. PRIALT [Suspect]
     Indication: PAIN
     Dosage: SEE IMAGE
     Route: 037
     Dates: end: 20061101
  2. PRIALT [Suspect]
     Indication: PAIN
     Dosage: SEE IMAGE
     Route: 037
     Dates: start: 20061101
  3. LEXAPRO [Concomitant]
  4. CYMBALTA [Concomitant]

REACTIONS (4)
  - AMNESIA [None]
  - DIARRHOEA [None]
  - DYSGEUSIA [None]
  - FEELING COLD [None]
